FAERS Safety Report 9251404 (Version 1)
Quarter: 2013Q2

REPORT INFORMATION
  Report Type: Spontaneous
  Country: US (occurrence: US)
  Receive Date: 20130424
  Receipt Date: 20130424
  Transmission Date: 20140414
  Serious: Yes (Other)
  Sender: FDA-Public Use
  Company Number: US-BRISTOL-MYERS SQUIBB COMPANY-18792739

PATIENT
  Age: 57 Year
  Sex: Male

DRUGS (3)
  1. ABILIFY [Suspect]
     Indication: BIPOLAR DISORDER
     Dosage: LOWERED TO 10MG IN OCT 2007 AND DISCONTINUED FURTHER
     Dates: start: 2007, end: 200801
  2. TEMAZEPAM [Concomitant]
  3. CLONAZEPAM [Concomitant]

REACTIONS (8)
  - Injury to brachial plexus due to birth trauma [Unknown]
  - Pain [Unknown]
  - Amnesia [Unknown]
  - Mood swings [Unknown]
  - Akathisia [Unknown]
  - Muscle spasms [Unknown]
  - Anxiety [Unknown]
  - Insomnia [Unknown]
